FAERS Safety Report 14804515 (Version 7)
Quarter: 2019Q1

REPORT INFORMATION
  Report Type: Spontaneous
  Country: GB (occurrence: GB)
  Receive Date: 20180425
  Receipt Date: 20190320
  Transmission Date: 20190417
  Serious: Yes (Life-Threatening, Hospitalization, Other)
  Sender: FDA-Public Use
  Company Number: GB-CONCORDIA PHARMACEUTICALS INC.-GSH201704-002170

PATIENT
  Age: 29 Year
  Sex: Female

DRUGS (29)
  1. THEOPHYLLINE [Suspect]
     Active Substance: THEOPHYLLINE ANHYDROUS
     Indication: ASTHMA
     Dosage: UNK
     Route: 065
  2. SALBUTAMOL [Suspect]
     Active Substance: ALBUTEROL
     Route: 042
  3. MONTELUKAST [Concomitant]
     Active Substance: MONTELUKAST SODIUM
     Indication: ASTHMA
     Route: 065
  4. MONTELUKAST [Suspect]
     Active Substance: MONTELUKAST SODIUM
     Route: 065
  5. SEVOFLURANE. [Suspect]
     Active Substance: SEVOFLURANE
     Indication: ASTHMA
     Dosage: DAILY DOSE-8 %
     Route: 055
  6. SALBUTAMOL [Suspect]
     Active Substance: ALBUTEROL
     Dosage: NEBULISATION
     Route: 065
  7. THEOPHYLLINE [Concomitant]
     Active Substance: THEOPHYLLINE ANHYDROUS
     Indication: ASTHMA
     Route: 065
  8. MONTELUKAST [Suspect]
     Active Substance: MONTELUKAST SODIUM
     Indication: ASTHMA
     Dosage: UNK
     Route: 048
  9. SEVOFLURANE. [Suspect]
     Active Substance: SEVOFLURANE
     Dosage: UNK
     Route: 055
  10. ALBUTEROL/00139501/ [Suspect]
     Active Substance: ALBUTEROL
     Indication: ASTHMA
     Route: 042
  11. PREDNISOLONE. [Suspect]
     Active Substance: PREDNISOLONE
     Dosage: UNK
     Route: 048
  12. EPINEPHRINE(ADRENALINE) [Suspect]
     Active Substance: EPINEPHRINE
     Indication: ASTHMA
     Dosage: DILUTED IN SMALL INCREMENTS
     Route: 065
  13. HYDROCORTISONE. [Suspect]
     Active Substance: HYDROCORTISONE
     Indication: ASTHMA
     Route: 042
  14. MAGNESIUM SULFATE. [Suspect]
     Active Substance: MAGNESIUM SULFATE
     Indication: ASTHMA
     Route: 042
  15. IPRATROPIUM BROMIDE. [Suspect]
     Active Substance: IPRATROPIUM BROMIDE
     Indication: ASTHMA
     Route: 065
  16. EPINEPHRINE(ADRENALINE) [Suspect]
     Active Substance: EPINEPHRINE
     Route: 065
  17. SEVOFLURANE. [Suspect]
     Active Substance: SEVOFLURANE
     Indication: ASTHMA
     Dosage: 8%, UNK
     Route: 055
  18. SALBUTAMOL [Suspect]
     Active Substance: ALBUTEROL
     Indication: ASTHMA
     Dosage: 2 BOLUSES
     Route: 040
  19. SALBUTAMOL [Suspect]
     Active Substance: ALBUTEROL
     Dosage: NEBULISER : IN REPEATED DOSES
     Route: 065
  20. KETAMINE [Suspect]
     Active Substance: KETAMINE
     Indication: ASTHMA
     Dosage: UNK
     Route: 042
  21. KETAMINE [Suspect]
     Active Substance: KETAMINE
     Dosage: INCREASED TO 45 MICROG/KG/MIN
     Route: 042
  22. PREDNISOLONE. [Suspect]
     Active Substance: PREDNISOLONE
     Indication: ASTHMA
     Route: 048
  23. THEOPHYLLINE [Suspect]
     Active Substance: THEOPHYLLINE ANHYDROUS
     Dosage: UNK
     Route: 065
  24. SALBUTAMOL [Suspect]
     Active Substance: ALBUTEROL
     Dosage: NEBULISER
     Route: 065
  25. IPRATROPIUM BROMIDE. [Suspect]
     Active Substance: IPRATROPIUM BROMIDE
     Dosage: NEBULISATION
     Route: 065
  26. PREDNISOLONE. [Concomitant]
     Active Substance: PREDNISOLONE
     Indication: ASTHMA
     Route: 065
  27. PREDNISOLONE. [Suspect]
     Active Substance: PREDNISOLONE
     Dosage: 30 MG, UNK
     Route: 065
  28. SALBUTAMOL [Suspect]
     Active Substance: ALBUTEROL
     Indication: ASTHMA
     Dosage: UNK
     Route: 042
  29. MAGNESIUM SULFATE. [Concomitant]
     Active Substance: MAGNESIUM SULFATE
     Indication: ASTHMA
     Dosage: UNK

REACTIONS (22)
  - Blood lactic acid increased [Recovering/Resolving]
  - Bronchospasm [Recovering/Resolving]
  - PO2 decreased [Recovering/Resolving]
  - Hypercapnia [Recovering/Resolving]
  - PCO2 increased [Recovering/Resolving]
  - Status asthmaticus [Recovered/Resolved]
  - Respiratory rate increased [Recovering/Resolving]
  - Asthma [Recovering/Resolving]
  - Wheezing [Recovering/Resolving]
  - Off label use [Unknown]
  - Asthma [Recovered/Resolved]
  - Blood pH decreased [Recovering/Resolving]
  - Airway peak pressure increased [Recovering/Resolving]
  - Cyanosis [Recovering/Resolving]
  - Oxygen saturation decreased [Recovering/Resolving]
  - Acute respiratory failure [Recovered/Resolved]
  - Respiratory acidosis [Recovering/Resolving]
  - Dyspnoea [Recovering/Resolving]
  - Blood bicarbonate decreased [Recovering/Resolving]
  - Lung hyperinflation [Recovering/Resolving]
  - Drug ineffective [Unknown]
  - Drug ineffective [Recovering/Resolving]
